FAERS Safety Report 25617169 (Version 1)
Quarter: 2025Q3

REPORT INFORMATION
  Report Type: Spontaneous
  Country: EU (occurrence: EU)
  Receive Date: 20250729
  Receipt Date: 20250729
  Transmission Date: 20251021
  Serious: Yes (Life-Threatening, Other)
  Sender: BAYER HEALTHCARE PHARMACEUTICALS INC.
  Company Number: EU-BIOEEL-METAMIZOLE_011

PATIENT
  Age: 49 Year
  Sex: Female

DRUGS (4)
  1. CIPROFLOXACIN [Suspect]
     Active Substance: CIPROFLOXACIN
  2. METAMIZOLE [Suspect]
     Active Substance: METAMIZOLE
  3. IRON SUCROSE [Suspect]
     Active Substance: IRON SUCROSE
  4. METHOTREXATE [Suspect]
     Active Substance: METHOTREXATE

REACTIONS (5)
  - Hypersensitivity [Recovered/Resolved]
  - Dyspnoea [Recovered/Resolved]
  - Crohn^s disease [Not Recovered/Not Resolved]
  - Periorbital oedema [Recovered/Resolved]
  - Rash [Recovered/Resolved]
